FAERS Safety Report 15712072 (Version 2)
Quarter: 2019Q1

REPORT INFORMATION
  Report Type: Spontaneous
  Country: US (occurrence: US)
  Receive Date: 20181212
  Receipt Date: 20190117
  Transmission Date: 20190417
  Serious: No
  Sender: FDA-Public Use
  Company Number: US-JNJFOC-20181125314

PATIENT
  Sex: Male
  Weight: 68.04 kg

DRUGS (3)
  1. ASPIRIN. [Concomitant]
     Active Substance: ASPIRIN
     Indication: SLEEP DISORDER THERAPY
     Dosage: SINCE ABOUT 20 YEARS OLD
     Route: 065
  2. MENS ROGAINE EXTRA STRENGTH [Suspect]
     Active Substance: MINOXIDIL
     Route: 061
  3. MENS ROGAINE EXTRA STRENGTH [Suspect]
     Active Substance: MINOXIDIL
     Indication: ALOPECIA
     Dosage: A HALF A CAP FULL AND SOMETIMES A SMIDGE MORE
     Route: 061
     Dates: start: 2018, end: 20181019

REACTIONS (6)
  - Product administered at inappropriate site [Unknown]
  - Vision blurred [Not Recovered/Not Resolved]
  - Skin tightness [Recovered/Resolved]
  - Overdose [Unknown]
  - Eye pain [Recovered/Resolved]
  - Wrong technique in product usage process [Unknown]

NARRATIVE: CASE EVENT DATE: 2018
